FAERS Safety Report 16695975 (Version 1)
Quarter: 2019Q3

REPORT INFORMATION
  Report Type: Report from Study
  Country: US (occurrence: US)
  Receive Date: 20190813
  Receipt Date: 20190813
  Transmission Date: 20191004
  Serious: Yes (Other)
  Sender: FDA-Public Use
  Company Number: US-ROCHE-2375082

PATIENT
  Sex: Female

DRUGS (6)
  1. METHOCARBAMOL. [Concomitant]
     Active Substance: METHOCARBAMOL
     Route: 065
  2. MELOXICAM. [Concomitant]
     Active Substance: MELOXICAM
     Route: 048
  3. OCREVUS [Suspect]
     Active Substance: OCRELIZUMAB
     Indication: PRIMARY PROGRESSIVE MULTIPLE SCLEROSIS
     Dosage: 300 MG IV EVERY TWO WEEKS FOR TWO DOSES
     Route: 042
     Dates: start: 201808
  4. OCREVUS [Suspect]
     Active Substance: OCRELIZUMAB
     Dosage: 600 MG IV EVERY 6 MONTHS
     Route: 042
  5. IBUPROFEN. [Concomitant]
     Active Substance: IBUPROFEN
  6. TYLENOL [Concomitant]
     Active Substance: ACETAMINOPHEN

REACTIONS (7)
  - Chest pain [Unknown]
  - Insomnia [Unknown]
  - Abdominal pain [Unknown]
  - Tachycardia [Unknown]
  - Respiratory tract infection [Unknown]
  - Vitamin D deficiency [Unknown]
  - Anxiety [Unknown]
